FAERS Safety Report 18115897 (Version 3)
Quarter: 2020Q3

REPORT INFORMATION
  Report Type: Not Available
  Country: CA (occurrence: CA)
  Receive Date: 20200805
  Receipt Date: 20200814
  Transmission Date: 20201103
  Serious: No
  Sender: FDA-Public Use
  Company Number: CA-LEXICON PHARMACEUTICALS, INC-20-1606-00612

PATIENT
  Age: 79 Year
  Sex: Female

DRUGS (2)
  1. SOMATULINE AUTOGEL [Suspect]
     Active Substance: LANREOTIDE ACETATE
     Indication: CARCINOID SYNDROME
     Route: 058
     Dates: start: 2020
  2. XERMELO [Suspect]
     Active Substance: TELOTRISTAT ETHYL
     Indication: CARCINOID SYNDROME
     Route: 048
     Dates: start: 20200711

REACTIONS (4)
  - Pollakiuria [Not Recovered/Not Resolved]
  - Faeces pale [Not Recovered/Not Resolved]
  - Abnormal faeces [Not Recovered/Not Resolved]
  - Diarrhoea [Recovered/Resolved]

NARRATIVE: CASE EVENT DATE: 20200711
